FAERS Safety Report 22397042 (Version 1)
Quarter: 2023Q2

REPORT INFORMATION
  Report Type: Spontaneous
  Country: US (occurrence: US)
  Receive Date: 20230602
  Receipt Date: 20230602
  Transmission Date: 20230722
  Serious: No
  Sender: FDA-Public Use
  Company Number: US-009507513-2305USA002956

PATIENT
  Age: 29 Year
  Sex: Female

DRUGS (3)
  1. KEYTRUDA [Suspect]
     Active Substance: PEMBROLIZUMAB
     Indication: Ovarian germ cell teratoma
  2. CISPLATIN [Concomitant]
     Active Substance: CISPLATIN
     Indication: Ovarian germ cell teratoma
  3. PACLITAXEL [Concomitant]
     Active Substance: PACLITAXEL
     Indication: Ovarian germ cell teratoma

REACTIONS (1)
  - Product use in unapproved indication [Unknown]
